FAERS Safety Report 19812344 (Version 1)
Quarter: 2021Q3

REPORT INFORMATION
  Report Type: Report from Study
  Country: US (occurrence: US)
  Receive Date: 20210910
  Receipt Date: 20210910
  Transmission Date: 20211014
  Serious: Yes (Hospitalization)
  Sender: FDA-Public Use
  Company Number: US-GILEAD-2021-0547807

PATIENT
  Age: 43 Year
  Sex: Female

DRUGS (12)
  1. MAGNESIUM OXIDE. [Concomitant]
     Active Substance: MAGNESIUM OXIDE
  2. CLOMIPRAMINE HCL [Concomitant]
     Active Substance: CLOMIPRAMINE
  3. PULMOZYME [Concomitant]
     Active Substance: DORNASE ALFA
  4. TRIKAFTA [Concomitant]
     Active Substance: ELEXACAFTOR\IVACAFTOR\TEZACAFTOR
  5. GABAPENTIN. [Concomitant]
     Active Substance: GABAPENTIN
  6. TRAZODONE HYDROCHLORIDE. [Concomitant]
     Active Substance: TRAZODONE HYDROCHLORIDE
  7. HYPERSAL [Concomitant]
     Active Substance: SODIUM CHLORIDE
  8. COLISTIN SULFATE [Concomitant]
     Active Substance: COLISTIN SULFATE
  9. AZTREONAM LYSINE [Suspect]
     Active Substance: AZTREONAM LYSINE
     Indication: CYSTIC FIBROSIS LUNG
     Dosage: 75 MG, TID FOR 28 DAYS ON AND 28 DAYS OFF
     Route: 065
  10. ZENPEP [Concomitant]
     Active Substance: PANCRELIPASE AMYLASE\PANCRELIPASE LIPASE\PANCRELIPASE PROTEASE
  11. KLONOPIN [Concomitant]
     Active Substance: CLONAZEPAM
  12. ALBUTEROL SULFATE. [Concomitant]
     Active Substance: ALBUTEROL SULFATE

REACTIONS (1)
  - Infection [Unknown]
